FAERS Safety Report 20279259 (Version 4)
Quarter: 2022Q1

REPORT INFORMATION
  Report Type: Spontaneous
  Country: US (occurrence: US)
  Receive Date: 20220103
  Receipt Date: 20220323
  Transmission Date: 20220423
  Serious: No
  Sender: FDA-Public Use
  Company Number: US-ORGANON-O2112USA000903

PATIENT
  Age: 23 Year
  Sex: Female
  Weight: 86.168 kg

DRUGS (1)
  1. NEXPLANON [Suspect]
     Active Substance: ETONOGESTREL
     Indication: Contraception
     Dosage: 1 IMPLANT (68MG EVERY 3 YEARS)
     Route: 059
     Dates: start: 20200623, end: 20211202

REACTIONS (6)
  - Pain in extremity [Not Recovered/Not Resolved]
  - Menstruation irregular [Not Recovered/Not Resolved]
  - Implant site pain [Not Recovered/Not Resolved]
  - Device breakage [Recovered/Resolved]
  - Weight increased [Unknown]
  - Acne [Unknown]

NARRATIVE: CASE EVENT DATE: 20201123
